FAERS Safety Report 6114009-3 (Version None)
Quarter: 2009Q1

REPORT INFORMATION
  Report Type: 
  Country: None (occurrence: None)
  Receive Date: 20090312
  Receipt Date: 20081216
  Transmission Date: 20090719
  Serious: No
  Sender: FDA-Public Use
  Company Number: US-ABBOTT-08P-163-0493483-00

PATIENT
  Age: 44 Year
  Sex: Female

DRUGS (3)
  1. LUPRON DEPOT [Suspect]
     Indication: ENDOMETRIOSIS
     Dosage: SEVERAL INJECTION
     Dates: start: 20070101
  2. LUPRON DEPOT [Suspect]
     Indication: MENSTRUAL DISORDER
  3. LUPRON DEPOT [Suspect]
     Indication: MENOPAUSAL SYMPTOMS

REACTIONS (4)
  - FATIGUE [None]
  - INFLUENZA LIKE ILLNESS [None]
  - MALAISE [None]
  - MOOD ALTERED [None]
